FAERS Safety Report 6396703-2 (Version None)
Quarter: 2009Q4

REPORT INFORMATION
  Report Type: 
  Country: None (occurrence: None)
  Receive Date: 20091012
  Receipt Date: 20090929
  Transmission Date: 20100525
  Serious: Yes (Death, Hospitalization)
  Sender: FDA-Public Use
  Company Number: ES-AMGEN-QUU366879

PATIENT
  Age: 83 Year
  Sex: Female

DRUGS (1)
  1. NEUPOGEN [Suspect]
     Indication: DRUG USE FOR UNKNOWN INDICATION
     Route: 058
     Dates: start: 20090821, end: 20090821

REACTIONS (4)
  - ACUTE RESPIRATORY DISTRESS SYNDROME [None]
  - ARTHRALGIA [None]
  - DYSPNOEA [None]
  - HAEMOPTYSIS [None]
